FAERS Safety Report 12405226 (Version 2)
Quarter: 2016Q2

REPORT INFORMATION
  Report Type: Report from Study
  Country: GB (occurrence: GB)
  Receive Date: 20160525
  Receipt Date: 20160610
  Transmission Date: 20160815
  Serious: Yes (Hospitalization, Other)
  Sender: FDA-Public Use
  Company Number: GB-BIOGEN-2016BI00237550

PATIENT
  Age: 7 Month
  Sex: Male
  Weight: 8.65 kg

DRUGS (9)
  1. INFACOL [Concomitant]
     Active Substance: DIMETHICONE
     Route: 048
     Dates: start: 20160110
  2. ALPROLIX [Suspect]
     Active Substance: EFTRENONACOG ALFA
     Route: 042
     Dates: start: 20160512, end: 20160512
  3. ALPROLIX [Suspect]
     Active Substance: EFTRENONACOG ALFA
     Route: 042
     Dates: start: 20160513, end: 20160513
  4. CABOL [Concomitant]
     Indication: PAIN
     Route: 048
     Dates: start: 20160407
  5. TRANEXAMIC ACID. [Concomitant]
     Active Substance: TRANEXAMIC ACID
     Indication: VENIPUNCTURE
     Route: 048
     Dates: start: 20160509
  6. BOBODENT [Concomitant]
     Indication: TEETHING
     Route: 061
     Dates: start: 20160320
  7. SODIUM HYDROGEN CARBONATE [Concomitant]
     Active Substance: SODIUM BICARBONATE
     Route: 048
     Dates: start: 20160113
  8. ALPROLIX [Suspect]
     Active Substance: EFTRENONACOG ALFA
     Route: 042
     Dates: start: 20160511, end: 20160511
  9. ALPROLIX [Suspect]
     Active Substance: EFTRENONACOG ALFA
     Indication: HAEMOPHILIA
     Route: 042
     Dates: start: 20160114

REACTIONS (1)
  - Central venous catheterisation [Recovered/Resolved]

NARRATIVE: CASE EVENT DATE: 20160511
